FAERS Safety Report 5520813-2 (Version None)
Quarter: 2007Q4

REPORT INFORMATION
  Report Type: 
  Country: None (occurrence: None)
  Receive Date: 20071119
  Receipt Date: 20071119
  Transmission Date: 20080405
  Serious: Yes (Disabling)
  Sender: FDA-Public Use
  Company Number: A0695070A

PATIENT
  Sex: Female

DRUGS (1)
  1. ALLI [Suspect]
     Indication: WEIGHT DECREASED

REACTIONS (4)
  - DRUG INEFFECTIVE [None]
  - EMOTIONAL DISTRESS [None]
  - FAECAL INCONTINENCE [None]
  - RECTAL DISCHARGE [None]
